FAERS Safety Report 12967376 (Version 1)
Quarter: 2016Q4

REPORT INFORMATION
  Report Type: Spontaneous
  Country: US (occurrence: US)
  Receive Date: 20161123
  Receipt Date: 20161123
  Transmission Date: 20170207
  Serious: Yes (Other)
  Sender: FDA-Public Use
  Company Number: US-JNJCP-30000361211

PATIENT
  Sex: Male
  Weight: 78 kg

DRUGS (6)
  1. NEUTROGENA ULTRA SHEER DRY TOUCH SUNBLOCK SPF 100 PLUS [Suspect]
     Active Substance: AVOBENZONE\HOMOSALATE\OCTISALATE\OCTOCRYLENE\OXYBENZONE
     Indication: PROPHYLAXIS
     Dosage: 4 TIMES A WEEK FOR MONTHS.
     Route: 061
     Dates: end: 20161029
  2. BABY ASPIRIN [Concomitant]
     Active Substance: ASPIRIN
     Dosage: ONE A DAY SINCE YEARS
  3. NEUTROGENA AGE SHIELD FACE SPF 110 [Suspect]
     Active Substance: AVOBENZONE\HOMOSALATE\OCTISALATE\OCTOCRYLENE\OXYBENZONE
     Indication: PROPHYLAXIS
     Dosage: APPLY LIBERALLY THREE DAYS A MONTH
     Route: 061
     Dates: start: 20161029, end: 20161029
  4. ALBUTEROL INHALER [Concomitant]
     Active Substance: ALBUTEROL
     Indication: ASTHMA
     Dosage: ONCE DAILY SINCE YEARS
     Route: 055
  5. MULTI VITAMIN [Concomitant]
     Active Substance: VITAMINS
     Indication: ROUTINE HEALTH MAINTENANCE
     Dosage: ONE A DAY SINCE YEARS
  6. NEUTROGENA PRODUCTS [Suspect]
     Active Substance: UNSPECIFIED INGREDIENT
     Indication: PROPHYLAXIS
     Dosage: LIBERALLY SEVERAL TIMES A DAY SEVERAL DAYS A WEEK
     Route: 061
     Dates: end: 20161029

REACTIONS (1)
  - Ventricular extrasystoles [Recovered/Resolved]

NARRATIVE: CASE EVENT DATE: 20161029
